FAERS Safety Report 7378990-7 (Version None)
Quarter: 2011Q1

REPORT INFORMATION
  Report Type: 
  Country: None (occurrence: None)
  Receive Date: 20110328
  Receipt Date: 20110315
  Transmission Date: 20110831
  Serious: Yes (Hospitalization, Other)
  Sender: FDA-Public Use
  Company Number: US-ELI_LILLY_AND_COMPANY-US201004004571

PATIENT
  Sex: Female
  Weight: 50.34 kg

DRUGS (10)
  1. EFFEXOR [Concomitant]
     Dosage: 150 MG, DAILY (1/D)
  2. METOPROLOL SUCCINATE [Concomitant]
     Indication: HYPERTENSION
     Dosage: 100 MG, 2/D
  3. NORVASC [Concomitant]
     Dosage: 10 MG, DAILY (1/D)
  4. FORTEO [Suspect]
     Indication: OSTEOPOROSIS
     Dosage: 20 UG, DAILY (1/D)
     Dates: start: 20090901
  5. LOVAZA [Concomitant]
     Dosage: 1000 MG, DAILY (1/D)
  6. KLOR-CON [Concomitant]
     Dosage: 20 MEQ, DAILY (1/D)
  7. NIACIN [Concomitant]
     Dosage: 500 MG, EACH EVENING
  8. PRINZIDE [Concomitant]
     Dosage: UNK, DAILY (1/D)
  9. COREG [Concomitant]
     Dosage: 3.125 MG, 2/D
  10. ZOCOR [Concomitant]
     Dosage: 20 MG, EACH EVENING

REACTIONS (5)
  - COGNITIVE DISORDER [None]
  - HAEMORRHAGIC STROKE [None]
  - SPEECH DISORDER [None]
  - VISUAL FIELD DEFECT [None]
  - DIPLOPIA [None]
